FAERS Safety Report 9746026 (Version 2)
Quarter: 2014Q1

REPORT INFORMATION
  Report Type: Spontaneous
  Country: OM (occurrence: OM)
  Receive Date: 20131211
  Receipt Date: 20140110
  Transmission Date: 20141002
  Serious: Yes (Other)
  Sender: FDA-Public Use
  Company Number: ALCN2013OM006147

PATIENT
  Sex: 0

DRUGS (1)
  1. BSS [Suspect]
     Dosage: UNK UNK, ONCE/SINGLE
     Route: 031
     Dates: start: 20131125, end: 20131125

REACTIONS (2)
  - Corneal opacity [Unknown]
  - Anterior chamber disorder [Unknown]
